FAERS Safety Report 21919454 (Version 1)
Quarter: 2023Q1

REPORT INFORMATION
  Report Type: Spontaneous
  Country: US (occurrence: None)
  Receive Date: 20230126
  Receipt Date: 20230126
  Transmission Date: 20230417
  Serious: No
  Sender: FDA-Public Use
  Company Number: None

PATIENT
  Age: 30 Year
  Weight: 58.5 kg

DRUGS (6)
  1. DEXTROAMPHET SACCHARAT, AMPHET ASPARTATE, DEXTROAMPHET SULFATE AND AMP [Suspect]
     Active Substance: AMPHETAMINE ASPARTATE\AMPHETAMINE SULFATE\DEXTROAMPHETAMINE SACCHARATE\DEXTROAMPHETAMINE SULFATE
     Indication: Attention deficit hyperactivity disorder
     Route: 048
  2. NALTREXONE HYDROCHLORIDE [Concomitant]
     Active Substance: NALTREXONE HYDROCHLORIDE
  3. NORETHINDRONE [Concomitant]
     Active Substance: NORETHINDRONE
  4. TESTOSTERONE CYPIONATE [Concomitant]
     Active Substance: TESTOSTERONE CYPIONATE
  5. MAGNESIUM [Concomitant]
     Active Substance: MAGNESIUM
  6. LORATADINE [Concomitant]
     Active Substance: LORATADINE

REACTIONS (5)
  - Insomnia [None]
  - Drug ineffective [None]
  - Manufacturing issue [None]
  - Affective disorder [None]
  - Product quality issue [None]

NARRATIVE: CASE EVENT DATE: 20220623
